FAERS Safety Report 5021025-1 (Version None)
Quarter: 2006Q2

REPORT INFORMATION
  Report Type: 
  Country: None (occurrence: None)
  Receive Date: 20060608
  Receipt Date: 20060502
  Transmission Date: 20061013
  Serious: Yes (Hospitalization)
  Sender: FDA-Public Use
  Company Number: DE-AVENTIS-200611276DE

PATIENT
  Sex: Female

DRUGS (2)
  1. FUROSEMIDE [Suspect]
     Indication: OEDEMA
     Route: 048
     Dates: start: 20060101, end: 20060101
  2. CO-DIOVAN [Suspect]

REACTIONS (4)
  - DRUG INTERACTION [None]
  - FALL [None]
  - SYNCOPE [None]
  - UPPER LIMB FRACTURE [None]
